FAERS Safety Report 6815454-0 (Version None)
Quarter: 2010Q3

REPORT INFORMATION
  Report Type: 
  Country: None (occurrence: None)
  Receive Date: 20100702
  Receipt Date: 20100614
  Transmission Date: 20110219
  Serious: Yes (Other)
  Sender: FDA-Public Use
  Company Number: US-JNJFOC-20100604570

PATIENT
  Sex: Male
  Weight: 97.52 kg

DRUGS (2)
  1. STELARA [Suspect]
     Indication: PSORIASIS
     Route: 058
  2. LISINOPRIL [Concomitant]

REACTIONS (1)
  - DIVERTICULITIS [None]
